FAERS Safety Report 4374303-3 (Version None)
Quarter: 2004Q2

REPORT INFORMATION
  Report Type: 
  Country: None (occurrence: None)
  Receive Date: 20040608
  Receipt Date: 20040608
  Transmission Date: 20050107
  Serious: Yes (Other)
  Sender: FDA-Public Use
  Company Number: None

PATIENT
  Age: 79 Year
  Sex: Female
  Weight: 72.5755 kg

DRUGS (1)
  1. NITROGLYCERIN [Suspect]
     Dosage: 0.4 MG Q 5 MIN FO TRANSDERMAL
     Route: 062
     Dates: start: 20040603, end: 20040606

REACTIONS (1)
  - ERYTHEMA [None]
